FAERS Safety Report 6043546-5 (Version None)
Quarter: 2009Q1

REPORT INFORMATION
  Report Type: 
  Country: None (occurrence: None)
  Receive Date: 20090120
  Receipt Date: 20090119
  Transmission Date: 20090719
  Serious: Yes (Other)
  Sender: FDA-Public Use
  Company Number: US-BAYER-200838765NA

PATIENT
  Age: 26 Year
  Sex: Female

DRUGS (1)
  1. MIRENA [Suspect]
     Indication: DRUG USE FOR UNKNOWN INDICATION
     Route: 015
     Dates: start: 20060612, end: 20081113

REACTIONS (6)
  - ECTOPIC PREGNANCY WITH INTRAUTERINE DEVICE [None]
  - INTRA-ABDOMINAL HAEMORRHAGE [None]
  - PELVIC PAIN [None]
  - RUPTURED ECTOPIC PREGNANCY [None]
  - SALPINGECTOMY [None]
  - SYNCOPE [None]
